FAERS Safety Report 21508622 (Version 1)
Quarter: 2022Q4

REPORT INFORMATION
  Report Type: Spontaneous
  Country: CN (occurrence: CN)
  Receive Date: 20221026
  Receipt Date: 20221026
  Transmission Date: 20230113
  Serious: Yes (Hospitalization, Other)
  Sender: FDA-Public Use
  Company Number: CN-PFIZER INC-PV202200088142

PATIENT
  Age: 66 Year
  Sex: Male
  Weight: 65 kg

DRUGS (15)
  1. METHOTREXATE SODIUM [Suspect]
     Active Substance: METHOTREXATE SODIUM
     Indication: Chemotherapy
     Dosage: 2.8G, 1X/DAY
     Route: 042
     Dates: start: 20211126, end: 20211126
  2. MABTHERA [Concomitant]
     Active Substance: RITUXIMAB
     Indication: Chemotherapy
     Dosage: 500.000 MG, 1X/DAY
     Route: 041
     Dates: start: 20211124, end: 20211124
  3. MABTHERA [Concomitant]
     Active Substance: RITUXIMAB
     Indication: Chemotherapy
     Dosage: 100.000 MG, 1X/DAY
     Route: 041
     Dates: start: 20211124, end: 20211124
  4. SODIUM CHLORIDE [Concomitant]
     Active Substance: SODIUM CHLORIDE
     Indication: Vehicle solution use
     Dosage: 100.000 ML, 1X/DAY
     Route: 042
     Dates: start: 20211124, end: 20211124
  5. SODIUM CHLORIDE [Concomitant]
     Active Substance: SODIUM CHLORIDE
     Dosage: 100.000 ML, 1X/DAY
     Route: 041
     Dates: start: 20211125, end: 20211125
  6. SODIUM CHLORIDE [Concomitant]
     Active Substance: SODIUM CHLORIDE
     Dosage: 100.000 ML, 1X/DAY
     Route: 042
     Dates: start: 20211126, end: 20211126
  7. SODIUM CHLORIDE [Concomitant]
     Active Substance: SODIUM CHLORIDE
     Indication: Vehicle solution use
     Dosage: 500.000 ML, 1X/DAY
     Route: 042
     Dates: start: 20211124, end: 20211124
  8. SODIUM CHLORIDE [Concomitant]
     Active Substance: SODIUM CHLORIDE
     Dosage: 500.000 ML, 1X/DAY
     Route: 041
     Dates: start: 20211125, end: 20211125
  9. SODIUM CHLORIDE [Concomitant]
     Active Substance: SODIUM CHLORIDE
     Dosage: 500.000 ML, 1X/DAY
     Route: 042
     Dates: start: 20211126, end: 20211126
  10. CYCLOPHOSPHAMIDE [Concomitant]
     Active Substance: CYCLOPHOSPHAMIDE
     Indication: Chemotherapy
     Dosage: 1.300 G, 1X/DAY
     Route: 041
     Dates: start: 20211125, end: 20211125
  11. VINDESINE SULFATE [Concomitant]
     Active Substance: VINDESINE SULFATE
     Indication: Chemotherapy
     Dosage: 4.000 MG, 1X/DAY
     Route: 041
     Dates: start: 20211125, end: 20211125
  12. DOXORUBICIN HYDROCHLORIDE [Concomitant]
     Active Substance: DOXORUBICIN HYDROCHLORIDE
     Indication: Chemotherapy
     Dosage: 20.000 MG, 1X/DAY
     Route: 041
     Dates: start: 20211125, end: 20211125
  13. DOXORUBICIN HYDROCHLORIDE [Concomitant]
     Active Substance: DOXORUBICIN HYDROCHLORIDE
     Dosage: 20.000 MG, 1X/DAY
     Route: 041
     Dates: start: 20211125, end: 20211125
  14. DEXTROSE [Concomitant]
     Active Substance: DEXTROSE
     Indication: Vehicle solution use
     Dosage: 250.000 ML, 1X/DAY
     Route: 041
     Dates: start: 20211125, end: 20211125
  15. DEXTROSE [Concomitant]
     Active Substance: DEXTROSE
     Dosage: 250.000 ML, 1X/DAY
     Route: 041
     Dates: start: 20211125, end: 20211125

REACTIONS (9)
  - Renal impairment [Recovering/Resolving]
  - Nausea [Unknown]
  - Vomiting [Unknown]
  - Gastrointestinal injury [Unknown]
  - Abdominal distension [Recovering/Resolving]
  - Constipation [Unknown]
  - Flatulence [Unknown]
  - Intestinal obstruction [Recovered/Resolved]
  - Abdominal pain [Recovered/Resolved]

NARRATIVE: CASE EVENT DATE: 20211129
